FAERS Safety Report 14381964 (Version 1)
Quarter: 2018Q1

REPORT INFORMATION
  Report Type: Spontaneous
  Country: US (occurrence: US)
  Receive Date: 20180112
  Receipt Date: 20180112
  Transmission Date: 20180509
  Serious: Yes (Other)
  Sender: FDA-Public Use
  Company Number: US-REGENERON PHARMACEUTICALS, INC.-2018-10375

PATIENT

DRUGS (2)
  1. EYLEA [Suspect]
     Active Substance: AFLIBERCEPT
     Indication: PRODUCT USED FOR UNKNOWN INDICATION
     Dosage: OD
  2. EYLEA [Suspect]
     Active Substance: AFLIBERCEPT
     Dosage: OD, LAST PRIOR TO EVENT
     Dates: start: 20171208, end: 20171208

REACTIONS (6)
  - Intraocular pressure increased [Recovered/Resolved]
  - Iritis [Unknown]
  - Keratic precipitates [Unknown]
  - Ocular hyperaemia [Unknown]
  - Anterior chamber cell [Recovered/Resolved]
  - Photophobia [Unknown]

NARRATIVE: CASE EVENT DATE: 20171209
